FAERS Safety Report 8229307-7 (Version None)
Quarter: 2012Q1

REPORT INFORMATION
  Report Type: 
  Country: None (occurrence: None)
  Receive Date: 20120322
  Receipt Date: 20081208
  Transmission Date: 20120608
  Serious: Yes (Hospitalization)
  Sender: FDA-Public Use
  Company Number: US-BRISTOL-MYERS SQUIBB COMPANY-13424346

PATIENT
  Age: 59 Year
  Sex: Female

DRUGS (6)
  1. WELLBUTRIN SR [Concomitant]
     Route: 048
  2. IPILIMUMAB [Suspect]
     Indication: MALIGNANT MELANOMA
     Route: 042
     Dates: start: 20060411, end: 20060613
  3. BUDESONIDE [Suspect]
     Indication: MALIGNANT MELANOMA
     Route: 048
     Dates: start: 20060411, end: 20060613
  4. CORTEF [Concomitant]
     Route: 048
  5. SYNTHROID [Concomitant]
     Route: 048
  6. FLUDROCORTISONE ACETATE [Concomitant]
     Route: 048

REACTIONS (3)
  - AUTOIMMUNE HEPATITIS [None]
  - COLITIS [None]
  - HYPOPITUITARISM [None]
